FAERS Safety Report 23599849 (Version 2)
Quarter: 2024Q2

REPORT INFORMATION
  Report Type: Spontaneous
  Country: US (occurrence: US)
  Receive Date: 20240306
  Receipt Date: 20240411
  Transmission Date: 20240716
  Serious: Yes (Other)
  Sender: FDA-Public Use
  Company Number: US-MLMSERVICE-20240221-4841686-1

PATIENT
  Age: 69 Year
  Sex: Male

DRUGS (9)
  1. METOPROLOL [Interacting]
     Active Substance: METOPROLOL
     Indication: Product used for unknown indication
     Dosage: 12.5 MILLIGRAM, ONCE A DAY
     Route: 065
  2. METOPROLOL [Interacting]
     Active Substance: METOPROLOL
     Dosage: 50 MILLIGRAM, ONCE A DAY
     Route: 065
  3. VALSARTAN [Interacting]
     Active Substance: VALSARTAN
     Indication: Product used for unknown indication
     Dosage: 40 DOSAGE FORM, TWO TIMES A DAY
     Route: 065
  4. VALSARTAN [Interacting]
     Active Substance: VALSARTAN
     Dosage: 40 DOSAGE FORM, ONCE A DAY
     Route: 065
  5. EPLERENONE [Interacting]
     Active Substance: EPLERENONE
     Indication: Product used for unknown indication
     Dosage: 50 MILLIGRAM, ONCE A DAY
     Route: 065
  6. EMPAGLIFLOZIN [Interacting]
     Active Substance: EMPAGLIFLOZIN
     Indication: Weight decreased
     Dosage: 10 MILLIGRAM, ONCE A DAY
     Route: 065
  7. SACUBITRIL\VALSARTAN [Interacting]
     Active Substance: SACUBITRIL\VALSARTAN
     Indication: Product used for unknown indication
     Dosage: 1 DOSAGE FORM, TWO TIMES A DAY
     Route: 065
  8. TIRZEPATIDE [Interacting]
     Active Substance: TIRZEPATIDE
     Indication: Weight decreased
     Dosage: 7.5 MILLIGRAM, EVERY WEEK
     Route: 065
  9. DULAGLUTIDE [Concomitant]
     Active Substance: DULAGLUTIDE
     Indication: Product used for unknown indication
     Dosage: 4.5 MILLIGRAM, EVERY WEEK
     Route: 065

REACTIONS (5)
  - Hypovolaemia [Unknown]
  - Hypotension [Recovered/Resolved]
  - Tachycardia [Recovered/Resolved]
  - Acute kidney injury [Recovered/Resolved]
  - Drug interaction [Recovered/Resolved]
